FAERS Safety Report 20961179 (Version 2)
Quarter: 2022Q3

REPORT INFORMATION
  Report Type: Spontaneous
  Country: BR (occurrence: BR)
  Receive Date: 20220615
  Receipt Date: 20220707
  Transmission Date: 20221026
  Serious: Yes (Life-Threatening, Hospitalization)
  Sender: FDA-Public Use
  Company Number: BR-TEVA BRAZIL-2022-BR-2045590

PATIENT
  Age: 14 Year
  Sex: Female

DRUGS (3)
  1. ATORVASTATIN CALCIUM [Suspect]
     Active Substance: ATORVASTATIN CALCIUM
     Indication: Acute promyelocytic leukaemia
     Dosage: BFM-AIOPE-2012 PROTOCOL
     Route: 065
  2. TRETINOIN [Suspect]
     Active Substance: TRETINOIN
     Indication: Acute promyelocytic leukaemia
     Dosage: BFM-AIOPE-2012 PROTOCOL
     Route: 065
  3. HYDREIA [Concomitant]
     Indication: White blood cell count increased
     Route: 065

REACTIONS (1)
  - Drug ineffective [Unknown]
